FAERS Safety Report 7008686-2 (Version None)
Quarter: 2010Q3

REPORT INFORMATION
  Report Type: 
  Country: None (occurrence: None)
  Receive Date: 20100922
  Receipt Date: 20100917
  Transmission Date: 20110219
  Serious: Yes (Hospitalization)
  Sender: FDA-Public Use
  Company Number: FR-MERCK-1009FRA00071

PATIENT
  Age: 70 Year
  Sex: Female

DRUGS (14)
  1. MODURETIC 5-50 [Suspect]
     Indication: HYPERTENSION
     Route: 048
     Dates: end: 20100626
  2. MEMANTINE HYDROCHLORIDE [Suspect]
     Indication: DEMENTIA ALZHEIMER'S TYPE
     Route: 048
     Dates: start: 20100625, end: 20100627
  3. INSULIN GLARGINE [Concomitant]
     Indication: TYPE 2 DIABETES MELLITUS
     Route: 058
  4. DIVALPROEX SODIUM [Concomitant]
     Indication: DEPRESSION
     Route: 048
  5. BROMAZEPAM [Concomitant]
     Indication: DEPRESSION
     Route: 048
  6. ZOLPIDEM TARTRATE [Concomitant]
     Indication: DEPRESSION
     Route: 048
  7. GABAPENTIN [Concomitant]
     Indication: NEURALGIA
     Route: 048
  8. GABAPENTIN [Concomitant]
     Route: 048
  9. LERCANIDIPINE HYDROCHLORIDE [Concomitant]
     Indication: HYPERTENSION
     Route: 048
  10. LEVOTHYROXINE SODIUM [Concomitant]
     Indication: HYPOTHYROIDISM
     Route: 048
  11. OMEPRAZOLE [Concomitant]
     Indication: GASTRITIS
     Route: 048
  12. ALUMINUM HYDROXIDE AND MAGNESIUM CARBONATE [Concomitant]
     Route: 048
  13. DESLORATADINE [Concomitant]
     Route: 048
  14. ACETAMINOPHEN [Concomitant]
     Indication: PAIN
     Route: 048

REACTIONS (2)
  - HYPONATRAEMIA [None]
  - PARTIAL SEIZURES [None]
